FAERS Safety Report 15419817 (Version 1)
Quarter: 2018Q3

REPORT INFORMATION
  Report Type: Spontaneous
  Country: GB (occurrence: GB)
  Receive Date: 20180924
  Receipt Date: 20180924
  Transmission Date: 20181010
  Serious: Yes (Other)
  Sender: FDA-Public Use
  Company Number: PHHY2018GB104293

PATIENT
  Age: 46 Year
  Sex: Female
  Weight: 70 kg

DRUGS (5)
  1. UTOVLAN [Concomitant]
     Indication: PRODUCT USED FOR UNKNOWN INDICATION
     Dosage: 3 ?G/L, QD
     Route: 065
     Dates: start: 20180712, end: 20180801
  2. REVAXIS [Concomitant]
     Active Substance: DIPHTHERIA AND TETANUS TOXOIDS AND POLIOVIRUS VACCINE ANTIGENS
     Indication: PRODUCT USED FOR UNKNOWN INDICATION
     Route: 065
     Dates: start: 20180627, end: 20180628
  3. FERROUS SULFATE. [Concomitant]
     Active Substance: FERROUS SULFATE
     Indication: PRODUCT USED FOR UNKNOWN INDICATION
     Dosage: 3 ?G/L, QD (WITH ORANGE JUICE)
     Route: 065
     Dates: start: 20180423
  4. COCODAMOL [Concomitant]
     Active Substance: ACETAMINOPHEN\CODEINE PHOSPHATE
     Indication: PRODUCT USED FOR UNKNOWN INDICATION
     Dosage: UNK UNK, QID (TAKE 1 OR 2, 4 TIMES A DAY)
     Route: 065
     Dates: start: 20180621, end: 20180719
  5. PHENOXYMETHYLPENICILLIN [Suspect]
     Active Substance: PENICILLIN V
     Indication: PRODUCT USED FOR UNKNOWN INDICATION
     Dosage: 250 MG, UNK
     Route: 065

REACTIONS (1)
  - Lip swelling [Recovered/Resolved]

NARRATIVE: CASE EVENT DATE: 20180831
